FAERS Safety Report 9576429 (Version 1)
Quarter: 2013Q4

REPORT INFORMATION
  Report Type: Spontaneous
  Country: US (occurrence: US)
  Receive Date: 20131001
  Receipt Date: 20131001
  Transmission Date: 20140711
  Serious: No
  Sender: FDA-Public Use
  Company Number: US-AMGEN-USASP2013003202

PATIENT
  Age: 53 Year
  Sex: Female
  Weight: 129.25 kg

DRUGS (19)
  1. ENBREL [Suspect]
     Indication: PSORIATIC ARTHROPATHY
     Dosage: 50 MG, QWK
     Route: 058
  2. DETROL [Concomitant]
     Dosage: 1 MG, UNK
  3. METHOTREXATE [Concomitant]
     Dosage: 2.5 MG, UNK
  4. PREDNISONE [Concomitant]
     Dosage: 1 MG, UNK
  5. LORATADINE [Concomitant]
     Dosage: 10 MG, UNK
  6. TRAMADOL HCL [Concomitant]
     Dosage: 50 MG, UNK
  7. NAPROXEN [Concomitant]
     Dosage: 250 MG, UNK
  8. PROMETHAZINE [Concomitant]
     Dosage: 12.5 MG, UNK
  9. DESONIDE [Concomitant]
     Dosage: 0.05 PERCENT
  10. ZOFRAN                             /00955301/ [Concomitant]
     Dosage: 4 MG, UNK
  11. LEVOTHYROXIN [Concomitant]
     Dosage: 100 MUG, UNK
  12. PRILOSEC                           /00661201/ [Concomitant]
     Dosage: 10 MG, UNK
  13. AMITRIPTYLIN [Concomitant]
     Dosage: 25 MG, UNK
  14. OXYCODONE [Concomitant]
     Dosage: 5 MG, UNK
  15. SULFASALAZIN [Concomitant]
     Dosage: 500 MG, UNK
  16. FOLIC ACID [Concomitant]
     Dosage: UNK
  17. VITAMIN D3 [Concomitant]
     Dosage: 10000 UNIT, UNK
  18. LYSTEDA [Concomitant]
     Dosage: 650 MG, UNK
  19. MULTIVITAMINS, PLAIN [Concomitant]
     Dosage: UNK

REACTIONS (3)
  - Cough [Unknown]
  - Dyspnoea [Unknown]
  - Upper-airway cough syndrome [Unknown]
